FAERS Safety Report 9769438 (Version 1)
Quarter: 2013Q4

REPORT INFORMATION
  Report Type: Spontaneous
  Country: US (occurrence: US)
  Receive Date: 20131218
  Receipt Date: 20131218
  Transmission Date: 20140711
  Serious: Yes (Hospitalization)
  Sender: FDA-Public Use
  Company Number: US-ASTRAZENECA-2013SE90482

PATIENT
  Age: 50 Year
  Sex: Female
  Weight: 53.5 kg

DRUGS (7)
  1. ZOLADEX [Suspect]
     Indication: BREAST CANCER FEMALE
     Route: 058
     Dates: start: 20130420
  2. ZOLADEX [Suspect]
     Indication: BREAST CANCER FEMALE
     Route: 058
     Dates: start: 201308
  3. TAMOXIFEN [Suspect]
     Indication: BREAST CANCER FEMALE
     Route: 048
     Dates: start: 2012
  4. GABAPENTIN [Concomitant]
     Indication: MUSCLE SPASMS
     Route: 048
  5. SUBOXONE [Concomitant]
     Indication: DRUG DEPENDENCE
     Route: 048
     Dates: start: 2008
  6. VIATMIN D [Concomitant]
     Indication: IMMUNODEFICIENCY
     Route: 048
  7. VITAMIN B12 INJECTION [Concomitant]
     Indication: CHEMOTHERAPY
     Dosage: WEEK

REACTIONS (11)
  - Skin papilloma [Not Recovered/Not Resolved]
  - Skin lesion [Not Recovered/Not Resolved]
  - Secretion discharge [Not Recovered/Not Resolved]
  - Skin odour abnormal [Not Recovered/Not Resolved]
  - Feeling abnormal [Unknown]
  - Emotional distress [Not Recovered/Not Resolved]
  - Discomfort [Not Recovered/Not Resolved]
  - Muscle spasms [Unknown]
  - Psychotic disorder [Unknown]
  - Hypoaesthesia [Not Recovered/Not Resolved]
  - Drug administration error [Not Recovered/Not Resolved]
